FAERS Safety Report 24527022 (Version 2)
Quarter: 2025Q3

REPORT INFORMATION
  Report Type: Report from Study
  Country: US (occurrence: US)
  Receive Date: 20241021
  Receipt Date: 20250803
  Transmission Date: 20251020
  Serious: Yes (Other)
  Sender: ALEXION PHARMACEUTICALS
  Company Number: US-AstraZeneca-CH-00725727A

PATIENT
  Sex: Female
  Weight: 96.6 kg

DRUGS (2)
  1. OLAPARIB [Suspect]
     Active Substance: OLAPARIB
     Indication: Fallopian tube cancer
     Dosage: 300 MILLIGRAM, BID
     Dates: start: 202304
  2. CLARITIN [Concomitant]
     Active Substance: LORATADINE
     Route: 065

REACTIONS (8)
  - Deafness [Unknown]
  - Fatigue [Unknown]
  - Faeces soft [Unknown]
  - Nausea [Recovered/Resolved]
  - Dyspepsia [Unknown]
  - Cough [Unknown]
  - Insomnia [Unknown]
  - Ear congestion [Unknown]
